FAERS Safety Report 5754046-1 (Version None)
Quarter: 2008Q2

REPORT INFORMATION
  Report Type: 
  Country: None (occurrence: None)
  Receive Date: 20080527
  Receipt Date: 20080515
  Transmission Date: 20081010
  Serious: Yes (Other)
  Sender: FDA-Public Use
  Company Number: 2008SP009144

PATIENT
  Age: 57 Year
  Sex: Female

DRUGS (1)
  1. DIPROSTENE (BETAMETHASONE SODIUM PHOSPHATE/DIPROPIONATE) (BETAMETHASON [Suspect]
     Indication: PAIN
     Dosage: IA
     Route: 014
     Dates: start: 20080415, end: 20080415

REACTIONS (11)
  - BRONCHITIS [None]
  - ERYTHEMA [None]
  - FATIGUE [None]
  - HEART RATE INCREASED [None]
  - HYPERCHOLESTEROLAEMIA [None]
  - HYPERGLYCAEMIA [None]
  - HYPERTHYROIDISM [None]
  - LOCALISED OEDEMA [None]
  - PALPITATIONS [None]
  - SWELLING FACE [None]
  - TREMOR [None]
